FAERS Safety Report 16469055 (Version 1)
Quarter: 2019Q2

REPORT INFORMATION
  Report Type: Spontaneous
  Country: US (occurrence: US)
  Receive Date: 20190624
  Receipt Date: 20190624
  Transmission Date: 20190711
  Serious: No
  Sender: FDA-Public Use
  Company Number: US-PFIZER INC-2019267478

PATIENT
  Sex: Male

DRUGS (1)
  1. GABAPENTIN. [Suspect]
     Active Substance: GABAPENTIN
     Indication: CEREBROVASCULAR ACCIDENT
     Dosage: 1200 MG, DAILY

REACTIONS (7)
  - Thinking abnormal [Unknown]
  - Pain [Unknown]
  - Dizziness [Unknown]
  - Off label use [Unknown]
  - Speech disorder [Unknown]
  - Product use in unapproved indication [Unknown]
  - Somnolence [Unknown]
